FAERS Safety Report 7035117-9 (Version None)
Quarter: 2010Q4

REPORT INFORMATION
  Report Type: 
  Country: None (occurrence: None)
  Receive Date: 20101008
  Receipt Date: 20100924
  Transmission Date: 20110411
  Serious: Yes (Hospitalization, Other)
  Sender: FDA-Public Use
  Company Number: PHHY2010US50081

PATIENT
  Sex: Male

DRUGS (14)
  1. ZOMETA [Suspect]
     Indication: MULTIPLE MYELOMA
     Dosage: 3.5 MG
     Route: 042
     Dates: start: 20100329, end: 20100427
  2. VELCADE [Suspect]
     Dosage: 2.7 MG, UNK
     Route: 042
     Dates: start: 20100329
  3. DEXAMETHASONE [Suspect]
     Indication: MULTIPLE MYELOMA
     Dosage: UNK
  4. REVLIMID [Suspect]
     Indication: MULTIPLE MYELOMA
  5. INSULIN [Concomitant]
     Dosage: UNK
  6. ZOSYN [Concomitant]
     Dosage: UNK
  7. COLACE [Concomitant]
     Dosage: UNK
  8. LOVENOX [Concomitant]
     Dosage: UNK
  9. NEURONTIN [Concomitant]
     Dosage: UNK
  10. PRILOSEC [Concomitant]
     Dosage: UNK
  11. METHADONE [Concomitant]
     Dosage: UNK
  12. ALOXI [Concomitant]
  13. ARANESP [Concomitant]
  14. DECADRON [Concomitant]

REACTIONS (26)
  - ACUTE PRERENAL FAILURE [None]
  - ASTHENIA [None]
  - BLOOD CALCIUM DECREASED [None]
  - BLOOD CREATINE PHOSPHOKINASE INCREASED [None]
  - BLOOD CREATININE INCREASED [None]
  - BLOOD ELECTROLYTES ABNORMAL [None]
  - BLOOD PRESSURE INCREASED [None]
  - CHILLS [None]
  - CONFUSIONAL STATE [None]
  - DEHYDRATION [None]
  - DYSPNOEA [None]
  - FATIGUE [None]
  - HAEMATOCRIT DECREASED [None]
  - HAEMOGLOBIN DECREASED [None]
  - HEART RATE INCREASED [None]
  - HYPONATRAEMIA [None]
  - HYPOPHOSPHATAEMIA [None]
  - HYPOTENSION [None]
  - MENTAL DISORDER [None]
  - PLATELET COUNT DECREASED [None]
  - PROTEINURIA [None]
  - PROTHROMBIN TIME PROLONGED [None]
  - PYREXIA [None]
  - RENAL DISORDER [None]
  - RENAL FAILURE ACUTE [None]
  - RHABDOMYOLYSIS [None]
